FAERS Safety Report 7940368-2 (Version None)
Quarter: 2011Q4

REPORT INFORMATION
  Report Type: 
  Country: None (occurrence: None)
  Receive Date: 20111127
  Receipt Date: 20111115
  Transmission Date: 20120403
  Serious: Yes (Hospitalization, Other)
  Sender: FDA-Public Use
  Company Number: US-ELI_LILLY_AND_COMPANY-US201111006436

PATIENT
  Sex: Female

DRUGS (8)
  1. REMERON [Concomitant]
  2. ASCORBIC ACID [Concomitant]
  3. FOLIC ACID [Concomitant]
  4. LEVOTHYROXINE SODIUM [Concomitant]
  5. FORTEO [Suspect]
     Indication: OSTEOPOROSIS
     Dosage: 20 UG, QD
  6. DEPAKOTE [Concomitant]
  7. MULTI-VITAMIN [Concomitant]
  8. FORTEO [Suspect]
     Dosage: 20 UG, QD
     Dates: start: 20110901

REACTIONS (3)
  - UPPER LIMB FRACTURE [None]
  - ALOPECIA [None]
  - FALL [None]
